FAERS Safety Report 8130372-6 (Version None)
Quarter: 2012Q1

REPORT INFORMATION
  Report Type: 
  Country: None (occurrence: None)
  Receive Date: 20120210
  Receipt Date: 20120207
  Transmission Date: 20120608
  Serious: Yes (Hospitalization, Other)
  Sender: FDA-Public Use
  Company Number: PHHY2012IT009134

PATIENT
  Sex: Male

DRUGS (3)
  1. ZOLPIDEM [Suspect]
     Dosage: 15 DF, UNK
     Route: 048
     Dates: start: 20120128
  2. VALSARTAN  AND HYDROCHLOROTHIAZIDE [Suspect]
     Dosage: 5 DF, UNK
     Dates: start: 20120128
  3. LENDORMIN [Suspect]
     Dosage: 40 DF, UNK
     Route: 048
     Dates: start: 20120128

REACTIONS (2)
  - INTENTIONAL DRUG MISUSE [None]
  - HYPOTENSION [None]
